FAERS Safety Report 5585152-2 (Version None)
Quarter: 2008Q1

REPORT INFORMATION
  Report Type: 
  Country: None (occurrence: None)
  Receive Date: 20080104
  Receipt Date: 20080104
  Transmission Date: 20080703
  Serious: Yes (Other)
  Sender: FDA-Public Use
  Company Number: None

PATIENT
  Age: 24 Year
  Sex: Female
  Weight: 46.7205 kg

DRUGS (2)
  1. AZITHROMYCIN [Suspect]
     Indication: BRONCHITIS
     Dosage: 500MG FIRST DAY, 250 MG AFTER DAILY BUCCAL
     Route: 002
     Dates: start: 20071123, end: 20071123
  2. AZITHROMYCIN [Concomitant]

REACTIONS (7)
  - COORDINATION ABNORMAL [None]
  - DIARRHOEA [None]
  - DIZZINESS [None]
  - FIBROMYALGIA [None]
  - GASTRIC DISORDER [None]
  - VISUAL DISTURBANCE [None]
  - VOMITING [None]
